FAERS Safety Report 11147461 (Version 4)
Quarter: 2015Q3

REPORT INFORMATION
  Report Type: Spontaneous
  Country: US (occurrence: US)
  Receive Date: 20150529
  Receipt Date: 20150724
  Transmission Date: 20151125
  Serious: Yes (Other)
  Sender: FDA-Public Use
  Company Number: US-AMGEN-USASP2015050903

PATIENT
  Age: 60 Year
  Sex: Female
  Weight: 49.89 kg

DRUGS (2)
  1. ENBREL [Suspect]
     Active Substance: ETANERCEPT
     Dosage: UNK
     Route: 058
  2. ENBREL [Suspect]
     Active Substance: ETANERCEPT
     Indication: RHEUMATOID ARTHRITIS
     Dosage: 50 MG, QWK
     Route: 058
     Dates: start: 20140627

REACTIONS (13)
  - Pain in extremity [Recovered/Resolved]
  - Injection site swelling [Recovered/Resolved]
  - Wrist fracture [Recovered/Resolved]
  - Hand fracture [Recovered/Resolved]
  - Pulmonary mass [Not Recovered/Not Resolved]
  - Tendon operation [Recovered/Resolved]
  - Device difficult to use [Recovered/Resolved]
  - Sinus disorder [Not Recovered/Not Resolved]
  - Hypersensitivity [Not Recovered/Not Resolved]
  - Injection site pain [Not Recovered/Not Resolved]
  - Tendon rupture [Recovered/Resolved]
  - Peripheral swelling [Recovered/Resolved]
  - Injection site reaction [Recovered/Resolved]

NARRATIVE: CASE EVENT DATE: 2014
